FAERS Safety Report 5310569-0 (Version None)
Quarter: 2007Q1

REPORT INFORMATION
  Report Type: 
  Country: None (occurrence: None)
  Receive Date: 20070201
  Receipt Date: 20061019
  Transmission Date: 20070707
  Serious: No
  Sender: FDA-Public Use
  Company Number: 257829

PATIENT
  Age: 66 Year
  Sex: Female
  Weight: 84.4 kg

DRUGS (3)
  1. LEVEMIR [Suspect]
     Indication: INSULIN-REQUIRING TYPE II DIABETES MELLITUS
     Dosage: QD, SUBCUTANEOUS
     Route: 058
     Dates: start: 20060201
  2. ACTOS /01460201/ (PIOGLITAZONE) [Concomitant]
  3. METFORMIN /00082702/ (METFORMIN HYDROCHLORIDE) [Concomitant]

REACTIONS (1)
  - BLOOD GLUCOSE INCREASED [None]
